FAERS Safety Report 16123936 (Version 1)
Quarter: 2019Q1

REPORT INFORMATION
  Report Type: Spontaneous
  Country: CN (occurrence: CN)
  Receive Date: 20190327
  Receipt Date: 20190327
  Transmission Date: 20190418
  Serious: Yes (Hospitalization)
  Sender: FDA-Public Use
  Company Number: CN-ELI_LILLY_AND_COMPANY-CN201903012891

PATIENT
  Age: 59 Year
  Sex: Female
  Weight: 65 kg

DRUGS (5)
  1. HUMULIN 70/30 [Suspect]
     Active Substance: INSULIN HUMAN
     Dosage: 30 IU, EACH MORNING
     Route: 058
     Dates: end: 20190318
  2. HUMULIN 70/30 [Suspect]
     Active Substance: INSULIN HUMAN
     Indication: TYPE 2 DIABETES MELLITUS
     Dosage: 20 IU, EACH MORNING
     Route: 058
     Dates: start: 201208
  3. HUMULIN 70/30 [Suspect]
     Active Substance: INSULIN HUMAN
     Dosage: 18 IU, EACH EVENING
     Route: 058
     Dates: start: 201208
  4. HUMULIN 70/30 [Suspect]
     Active Substance: INSULIN HUMAN
     Dosage: 28 IU, EACH EVENING
     Route: 058
     Dates: end: 20190318
  5. METFORMIN [Concomitant]
     Active Substance: METFORMIN HYDROCHLORIDE
     Indication: PRODUCT USED FOR UNKNOWN INDICATION
     Dosage: UNK UNK, DAILY (1 TABLET QD)
     Route: 048

REACTIONS (3)
  - Blood glucose decreased [Unknown]
  - Blood glucose increased [Unknown]
  - Dizziness [Unknown]
